FAERS Safety Report 25943823 (Version 2)
Quarter: 2025Q4

REPORT INFORMATION
  Report Type: Spontaneous
  Country: GB (occurrence: GB)
  Receive Date: 20251021
  Receipt Date: 20251107
  Transmission Date: 20260118
  Serious: Yes (Life-Threatening, Hospitalization)
  Sender: TEVA
  Company Number: GB-TEVA-VS-3383338

PATIENT
  Age: 30 Year
  Sex: Female

DRUGS (7)
  1. DEXAMETHASONE [Suspect]
     Active Substance: DEXAMETHASONE
     Indication: Encephalitis autoimmune
     Route: 065
  2. HALOPERIDOL [Concomitant]
     Active Substance: HALOPERIDOL
     Indication: Psychotic disorder
     Route: 048
  3. ACYCLOVIR [Concomitant]
     Active Substance: ACYCLOVIR
     Indication: Product used for unknown indication
     Route: 042
  4. IMMUNE GLOBULIN NOS [Suspect]
     Active Substance: IMMUNE GLOBULIN NOS
     Indication: Encephalitis autoimmune
     Route: 042
  5. DANTROLENE [Concomitant]
     Active Substance: DANTROLENE
     Indication: Neuroleptic malignant syndrome
     Route: 065
  6. CEFTRIAXONE [Concomitant]
     Active Substance: CEFTRIAXONE
     Indication: Product used for unknown indication
     Route: 065
  7. METHYLPREDNISOLONE [Suspect]
     Active Substance: METHYLPREDNISOLONE
     Indication: Encephalitis autoimmune
     Route: 042

REACTIONS (1)
  - Drug ineffective [Unknown]
